FAERS Safety Report 6492303-4 (Version None)
Quarter: 2009Q4

REPORT INFORMATION
  Report Type: 
  Country: None (occurrence: None)
  Receive Date: 20091214
  Receipt Date: 20091111
  Transmission Date: 20100525
  Serious: No
  Sender: FDA-Public Use
  Company Number: US-BAYER-200939535NA

PATIENT
  Age: 32 Year
  Sex: Male

DRUGS (2)
  1. AVELOX [Suspect]
     Indication: LUNG DISORDER
     Dates: start: 20091028, end: 20091102
  2. IBUPROFEN [Concomitant]
     Dates: start: 20090101

REACTIONS (7)
  - ABDOMINAL PAIN [None]
  - ANXIETY [None]
  - DIZZINESS [None]
  - HEADACHE [None]
  - INSOMNIA [None]
  - MALAISE [None]
  - PRURITUS [None]
